FAERS Safety Report 25947863 (Version 1)
Quarter: 2025Q4

REPORT INFORMATION
  Report Type: Report from Study
  Country: US (occurrence: US)
  Receive Date: 20251022
  Receipt Date: 20251022
  Transmission Date: 20260118
  Serious: Yes (Hospitalization)
  Sender: BAYER HEALTHCARE PHARMACEUTICALS INC.
  Company Number: US-BAYER-2025A118708

PATIENT
  Age: 67 Year
  Sex: Female
  Weight: 58.05 kg

DRUGS (27)
  1. ADEMPAS [Suspect]
     Active Substance: RIOCIGUAT
     Indication: Pulmonary arterial hypertension
     Dosage: 0.5 MG, TID
     Route: 048
     Dates: start: 20230607
  2. ADEMPAS [Suspect]
     Active Substance: RIOCIGUAT
     Indication: Pulmonary arterial hypertension
     Dosage: 0.5 MG, TID
     Route: 048
  3. ALPHA LIPOIC ACID [Concomitant]
     Active Substance: .ALPHA.-LIPOIC ACID
  4. MIDODRINE HYDROCHLORIDE [Concomitant]
     Active Substance: MIDODRINE HYDROCHLORIDE
  5. ROSUVASTATIN CALCIUM [Concomitant]
     Active Substance: ROSUVASTATIN CALCIUM
  6. PEPCID AC [Concomitant]
     Active Substance: FAMOTIDINE
  7. MOUNJARO [Concomitant]
     Active Substance: TIRZEPATIDE
  8. FOLIC ACID [Concomitant]
     Active Substance: FOLIC ACID
  9. POTASSIUM CHLORIDE [Concomitant]
     Active Substance: POTASSIUM CHLORIDE
  10. PREDNISONE [Concomitant]
     Active Substance: PREDNISONE
  11. OPSUMIT [Concomitant]
     Active Substance: MACITENTAN
  12. MAGNESIUM [Concomitant]
     Active Substance: MAGNESIUM
  13. TOUJEO MAX [Concomitant]
     Active Substance: INSULIN GLARGINE
  14. COENZYME Q10 [Concomitant]
     Active Substance: DIETARY SUPPLEMENT\UBIDECARENONE
  15. ELIQUIS [Concomitant]
     Active Substance: APIXABAN
  16. MENAQUINONE 6 [Concomitant]
     Active Substance: MENAQUINONE 6
  17. B12 active [Concomitant]
  18. VITAMIN D3 [Concomitant]
     Active Substance: CHOLECALCIFEROL
  19. MYFORTIC [Concomitant]
     Active Substance: MYCOPHENOLATE SODIUM
  20. WINREVAIR [Concomitant]
     Active Substance: SOTATERCEPT-CSRK
  21. OXYGEN [Concomitant]
     Active Substance: OXYGEN
  22. ORENITRAM [Concomitant]
     Active Substance: TREPROSTINIL
  23. FLAXSEED [Concomitant]
     Active Substance: FLAX SEED
  24. FUROSEMIDE [Concomitant]
     Active Substance: FUROSEMIDE
  25. ACETAMINOPHEN [Concomitant]
     Active Substance: ACETAMINOPHEN
  26. PFIZER-BIONTECH COVID-19 VACCINE [Concomitant]
     Active Substance: TOZINAMERAN
  27. VITAMIN B COMPLEX [Concomitant]
     Active Substance: CYANOCOBALAMIN\DEXPANTHENOL\NIACINAMIDE\PYRIDOXINE HYDROCHLORIDE\RIBOFLAVIN 5^-PHOSPHATE SODIUM\THIA

REACTIONS (5)
  - Pulmonary embolism [None]
  - Lung neoplasm [None]
  - Pulmonary fibrosis [None]
  - Ammonia [None]
  - Illness [None]

NARRATIVE: CASE EVENT DATE: 20250101
